FAERS Safety Report 8299622-X (Version None)
Quarter: 2012Q2

REPORT INFORMATION
  Report Type: 
  Country: None (occurrence: None)
  Receive Date: 20120419
  Receipt Date: 20120413
  Transmission Date: 20120825
  Serious: Yes (Hospitalization)
  Sender: FDA-Public Use
  Company Number: JP-GLAXOSMITHKLINE-B0778391A

PATIENT
  Age: 44 Year
  Sex: Female
  Weight: 67 kg

DRUGS (18)
  1. LAMICTAL [Suspect]
     Dosage: 100MG PER DAY
     Route: 048
     Dates: start: 20111222, end: 20111223
  2. OFLOXACIN [Concomitant]
     Route: 031
  3. ABILIFY [Concomitant]
     Route: 048
     Dates: start: 20110927
  4. GOODMIN [Concomitant]
     Route: 048
  5. CHINESE MEDICINE [Concomitant]
     Route: 048
  6. ALLEGRA [Concomitant]
     Route: 048
  7. ACETAMINOPHEN [Concomitant]
     Route: 048
  8. OMEPRAZOLE [Concomitant]
     Route: 048
  9. LAMICTAL [Suspect]
     Dosage: 50MG PER DAY
     Route: 048
     Dates: start: 20111207, end: 20111221
  10. DEPAS [Concomitant]
     Route: 048
  11. NEULEPTIL [Concomitant]
     Route: 048
  12. LAMICTAL [Suspect]
     Indication: BIPOLAR DISORDER
     Dosage: 25MG PER DAY
     Route: 048
     Dates: start: 20111123, end: 20111206
  13. ALOSENN [Concomitant]
     Route: 048
  14. PAXIL [Concomitant]
     Route: 048
  15. MEILAX [Concomitant]
     Route: 048
  16. LOXONIN [Concomitant]
     Route: 048
  17. AMOBAN [Concomitant]
     Route: 048
  18. ALPRAZOLAM [Concomitant]
     Route: 048

REACTIONS (14)
  - LIVER DISORDER [None]
  - DRY SKIN [None]
  - LICHENIFICATION [None]
  - OCULAR HYPERAEMIA [None]
  - STEVENS-JOHNSON SYNDROME [None]
  - PRURITUS [None]
  - EPIDERMAL NECROSIS [None]
  - PYREXIA [None]
  - ERYTHEMA MULTIFORME [None]
  - ERYTHEMA [None]
  - CHEILITIS [None]
  - EYELID EROSION [None]
  - KERATITIS HERPETIC [None]
  - SKIN DEGENERATIVE DISORDER [None]
